FAERS Safety Report 22118013 (Version 1)
Quarter: 2023Q1

REPORT INFORMATION
  Report Type: Spontaneous
  Country: US (occurrence: None)
  Receive Date: 20230321
  Receipt Date: 20230321
  Transmission Date: 20230418
  Serious: No
  Sender: FDA-Public Use
  Company Number: US-ROCHE-3264438

PATIENT
  Age: 90 Year

DRUGS (1)
  1. VABYSMO [Suspect]
     Active Substance: FARICIMAB-SVOA
     Indication: Neovascular age-related macular degeneration
     Dosage: (3 IVT INJECTIONS IN THE RIGHT EYE, AND 4 IN THE LEFT EYE)
     Route: 050

REACTIONS (1)
  - Vitreous floaters [Unknown]
